FAERS Safety Report 5143160-X (Version None)
Quarter: 2006Q4

REPORT INFORMATION
  Report Type: 
  Country: None (occurrence: None)
  Receive Date: 20061030
  Receipt Date: 20061017
  Transmission Date: 20070319
  Serious: Yes (Other)
  Sender: FDA-Public Use
  Company Number: 2006127392

PATIENT
  Age: 12 Year
  Sex: Female
  Weight: 28.8 kg

DRUGS (2)
  1. METHYLPREDNISOLONE [Suspect]
     Indication: INTERSTITIAL LUNG DISEASE
     Dosage: (560 MG), INTRAVENOUS
     Route: 042
     Dates: start: 20040625, end: 20040627
  2. ALL OTHER THERAPEUTIC PRODUCTS (ALL OTHER THERAPEUTIC PRODUCTS) [Concomitant]

REACTIONS (4)
  - AGGRESSION [None]
  - DEPRESSION [None]
  - MANIA [None]
  - PSYCHOTIC DISORDER [None]
